FAERS Safety Report 7946308-4 (Version None)
Quarter: 2011Q4

REPORT INFORMATION
  Report Type: 
  Country: None (occurrence: None)
  Receive Date: 20111129
  Receipt Date: 20111115
  Transmission Date: 20120403
  Serious: Yes (Hospitalization, Other)
  Sender: FDA-Public Use
  Company Number: US-ROCHE-368453

PATIENT
  Sex: Female
  Weight: 70.8 kg

DRUGS (3)
  1. PEGASYS [Suspect]
     Indication: HEPATITIS C
     Route: 058
     Dates: start: 20040208, end: 20040623
  2. PEGASYS [Suspect]
     Route: 058
  3. COPEGUS [Suspect]
     Indication: HEPATITIS C
     Route: 048
     Dates: start: 20040208, end: 20040623

REACTIONS (14)
  - HAEMOLYTIC ANAEMIA [None]
  - APLASTIC ANAEMIA [None]
  - MUSCLE SPASMS [None]
  - PNEUMONIA [None]
  - ASTHENIA [None]
  - PLATELET COUNT DECREASED [None]
  - MEDICATION ERROR [None]
  - RENAL DISORDER [None]
  - RED BLOOD CELL COUNT DECREASED [None]
  - WHITE BLOOD CELL COUNT DECREASED [None]
  - MENORRHAGIA [None]
  - MYALGIA [None]
  - HAEMOGLOBIN DECREASED [None]
  - HAEMATOCRIT DECREASED [None]
